FAERS Safety Report 10990708 (Version 1)
Quarter: 2015Q1

REPORT INFORMATION
  Report Type: Spontaneous
  Country: US (occurrence: None)
  Receive Date: 20150326
  Receipt Date: 20150326
  Transmission Date: 20150721
  Serious: No
  Sender: FDA-Public Use
  Company Number: 1000073490

PATIENT
  Age: 66 Year
  Sex: Female

DRUGS (1)
  1. LINZESS [Suspect]
     Active Substance: LINACLOTIDE
     Dates: start: 201306, end: 201312

REACTIONS (6)
  - Dehydration [None]
  - Electrolyte depletion [None]
  - Fatigue [None]
  - Off label use [None]
  - Diarrhoea [None]
  - Anal inflammation [None]

NARRATIVE: CASE EVENT DATE: 2013
